APPROVED DRUG PRODUCT: VORICONAZOLE
Active Ingredient: VORICONAZOLE
Strength: 50MG
Dosage Form/Route: TABLET;ORAL
Application: A200265 | Product #001 | TE Code: AB
Applicant: SANDOZ INC
Approved: Dec 12, 2011 | RLD: No | RS: No | Type: RX